FAERS Safety Report 6159114-0 (Version None)
Quarter: 2009Q2

REPORT INFORMATION
  Report Type: 
  Country: None (occurrence: None)
  Receive Date: 20090417
  Receipt Date: 20090410
  Transmission Date: 20091009
  Serious: Yes (Other)
  Sender: FDA-Public Use
  Company Number: US-ELI_LILLY_AND_COMPANY-US200904002312

PATIENT
  Age: 77 Year
  Sex: Male

DRUGS (2)
  1. HUMULIN 70/30 [Suspect]
  2. LEVEMIR [Concomitant]

REACTIONS (4)
  - HYPOGLYCAEMIA [None]
  - INCOHERENT [None]
  - IRRITABILITY [None]
  - TRANSIENT ISCHAEMIC ATTACK [None]
